FAERS Safety Report 5927888-7 (Version None)
Quarter: 2008Q4

REPORT INFORMATION
  Report Type: 
  Country: None (occurrence: None)
  Receive Date: 20081022
  Receipt Date: 20081022
  Transmission Date: 20090506
  Serious: Yes (Life-Threatening, Hospitalization, Disabling)
  Sender: FDA-Public Use
  Company Number: None

PATIENT
  Age: 77 Year
  Sex: Male
  Weight: 58.9676 kg

DRUGS (2)
  1. SIMVASTATIN [Suspect]
     Indication: BLOOD CHOLESTEROL INCREASED
     Dosage: 80 MG 1 TAB DAILY DENTAL
     Route: 004
     Dates: start: 20030528, end: 20080815
  2. AMIODARONE HCL [Suspect]
     Indication: CARDIAC FAILURE
     Dosage: 200 MG  1 TAB DAILY DENTAL
     Route: 004
     Dates: start: 20070618, end: 20080813

REACTIONS (5)
  - ABASIA [None]
  - ASTHENIA [None]
  - FATIGUE [None]
  - MUSCLE DISORDER [None]
  - PAIN IN EXTREMITY [None]
